FAERS Safety Report 12840009 (Version 2)
Quarter: 2016Q4

REPORT INFORMATION
  Report Type: Spontaneous
  Country: AT (occurrence: AT)
  Receive Date: 20161012
  Receipt Date: 20161027
  Transmission Date: 20170207
  Serious: Yes (Hospitalization)
  Sender: FDA-Public Use
  Company Number: AT-SA-2016SA184831

PATIENT
  Age: 55 Year
  Sex: Male

DRUGS (1)
  1. LOVENOX [Suspect]
     Active Substance: ENOXAPARIN SODIUM
     Indication: SURGERY
     Dosage: 40 MG FOR ONE WEEK
     Route: 065

REACTIONS (1)
  - Cerebrovascular accident [Unknown]
